FAERS Safety Report 4944648-4 (Version None)
Quarter: 2006Q1

REPORT INFORMATION
  Report Type: 
  Country: None (occurrence: None)
  Receive Date: 20060113
  Receipt Date: 20050223
  Transmission Date: 20060701
  Serious: Yes (Other)
  Sender: FDA-Public Use
  Company Number: HQWYE242906FEB03

PATIENT
  Age: 58 Year
  Sex: Female

DRUGS (6)
  1. PREMPRO [Suspect]
     Indication: MENOPAUSAL SYMPTOMS
     Dosage: 0.625 MG
     Dates: start: 19990103
  2. PREMARIN [Suspect]
     Indication: MENOPAUSAL SYMPTOMS
     Dosage: 0.625 MG TABLET DAILY,
     Dates: start: 19910101
  3. PROVERA [Suspect]
     Indication: MENOPAUSAL SYMPTOMS
     Dosage: 2.5MG - 5MG TABLET DAILY, ORAL
     Route: 048
     Dates: start: 19910101, end: 19910101
  4. CALCIUM (CALCIUM) [Concomitant]
  5. GINKGO BILOBA (GINKGO BILOBA) [Concomitant]
  6. ST. JOHN'S WORT (HYPERICUM PERFORATUM) [Concomitant]

REACTIONS (2)
  - BREAST CANCER FEMALE [None]
  - CERVICAL DYSPLASIA [None]
